FAERS Safety Report 8456378-5 (Version None)
Quarter: 2012Q2

REPORT INFORMATION
  Report Type: 
  Country: None (occurrence: None)
  Receive Date: 20120621
  Receipt Date: 20120614
  Transmission Date: 20120825
  Serious: Yes (Hospitalization)
  Sender: FDA-Public Use
  Company Number: TW-GLAXOSMITHKLINE-B0809219A

PATIENT
  Age: 67 Year
  Sex: Female
  Weight: 48 kg

DRUGS (5)
  1. AMINOPHYLLIN [Concomitant]
  2. AVANDIA [Suspect]
     Indication: DIABETES MELLITUS
     Dosage: 4MG PER DAY
     Route: 065
     Dates: start: 20011019, end: 20011030
  3. BUMETANIDE [Concomitant]
  4. LOSARTAN POTASSIUM [Suspect]
     Indication: PRODUCT USED FOR UNKNOWN INDICATION
     Dosage: 25MG PER DAY
     Route: 065
     Dates: start: 20010817, end: 20011030
  5. DIGOXIN [Concomitant]

REACTIONS (11)
  - LEUKOCYTOSIS [None]
  - PAIN [None]
  - URINARY TRACT INFECTION [None]
  - ABDOMINAL DISTENSION [None]
  - ABDOMINAL PAIN UPPER [None]
  - HEPATIC ENZYME INCREASED [None]
  - LETHARGY [None]
  - ABDOMINAL PAIN [None]
  - MALAISE [None]
  - HEPATITIS ACUTE [None]
  - DECREASED APPETITE [None]
